FAERS Safety Report 9667677 (Version 1)
Quarter: 2013Q4

REPORT INFORMATION
  Report Type: Spontaneous
  Country: US (occurrence: US)
  Receive Date: 20131101
  Receipt Date: 20131101
  Transmission Date: 20140711
  Serious: No
  Sender: FDA-Public Use
  Company Number: US-ORACLE-2012S1000011

PATIENT
  Age: 64 Year
  Sex: Male
  Weight: 68.04 kg

DRUGS (14)
  1. KRYSTEXXA INJECTION [Suspect]
     Indication: GOUT
     Route: 042
     Dates: start: 20120210
  2. LIPITOR [Concomitant]
     Indication: BLOOD CHOLESTEROL
  3. METOPROLOL [Concomitant]
     Indication: ARRHYTHMIA
  4. LISINOPRIL [Concomitant]
     Indication: CARDIAC DISORDER
  5. PLAVIX [Concomitant]
     Indication: ANTICOAGULANT THERAPY
  6. ASPIRIN [Concomitant]
     Indication: ANTICOAGULANT THERAPY
  7. MEXILETINE [Concomitant]
     Indication: VENTRICULAR FIBRILLATION
  8. QUINIDINE [Concomitant]
     Indication: VENTRICULAR FIBRILLATION
  9. PREDNISONE [Concomitant]
     Indication: GOUT
     Dates: start: 20120210, end: 20120215
  10. ULORIC [Concomitant]
     Indication: GOUT
  11. SOLUMEDROL [Concomitant]
     Indication: PREMEDICATION
     Dates: start: 20120210
  12. TYLENOL /00020001/ [Concomitant]
     Indication: PREMEDICATION
     Dates: start: 20120210
  13. CLARITIN /00917501/ [Concomitant]
     Indication: PREMEDICATION
     Dates: start: 20120210
  14. VICODIN [Concomitant]
     Indication: PAIN

REACTIONS (6)
  - Diarrhoea [Recovered/Resolved]
  - Malaise [Recovered/Resolved]
  - Weight increased [Recovering/Resolving]
  - Weight decreased [Unknown]
  - Nausea [Recovered/Resolved]
  - Gout [Recovering/Resolving]
